FAERS Safety Report 4492597-0 (Version None)
Quarter: 2004Q4

REPORT INFORMATION
  Report Type: 
  Country: None (occurrence: None)
  Receive Date: 20041102
  Receipt Date: 20041102
  Transmission Date: 20050328
  Serious: Yes (Other)
  Sender: FDA-Public Use
  Company Number: None

PATIENT

DRUGS (2)
  1. MIDAZOLAM 5 MG/ML 1 ML FILL IN 2 ML VIALS (BAXTER) [Suspect]
     Indication: SURGERY
     Dosage: 5 MG/ML (1 ML FILL)
  2. MIDAZOLAM 10 MG/2ML 2 ML FILL IN 2 ML VIALS (BAXTER) [Suspect]
     Indication: SURGERY
     Dosage: 5 MG/ML (2 ML FILL)

REACTIONS (1)
  - MEDICATION ERROR [None]
